FAERS Safety Report 5388741-3 (Version None)
Quarter: 2007Q3

REPORT INFORMATION
  Report Type: 
  Country: None (occurrence: None)
  Receive Date: 20070712
  Receipt Date: 20070710
  Transmission Date: 20080115
  Serious: Yes (Life-Threatening)
  Sender: FDA-Public Use
  Company Number: 07H-163-0312809-00

PATIENT
  Age: 34 Year
  Sex: Female
  Weight: 77.5651 kg

DRUGS (2)
  1. LACTATED RINGER'S [Suspect]
     Indication: DRUG USE FOR UNKNOWN INDICATION
     Dates: start: 20060904
  2. PRENATAL VITAMINS (PRENATAL VITAMINS) [Concomitant]

REACTIONS (15)
  - BACK PAIN [None]
  - DISORIENTATION [None]
  - DROOLING [None]
  - DRUG EXPOSURE DURING PREGNANCY [None]
  - DYSPNOEA [None]
  - EXOPHTHALMOS [None]
  - FEAR [None]
  - HAEMORRHAGE [None]
  - HYPERHIDROSIS [None]
  - INTRA-UTERINE DEATH [None]
  - METRORRHAGIA [None]
  - PREMATURE RUPTURE OF MEMBRANES [None]
  - RETAINED PLACENTA OR MEMBRANES [None]
  - UTERINE RUPTURE [None]
  - VULVOVAGINAL DISCOMFORT [None]
